FAERS Safety Report 20957020 (Version 1)
Quarter: 2022Q2

REPORT INFORMATION
  Report Type: Spontaneous
  Country: SE (occurrence: SE)
  Receive Date: 20220614
  Receipt Date: 20220614
  Transmission Date: 20220721
  Serious: Yes (Disabling, Other)
  Sender: FDA-Public Use
  Company Number: SE-VER-202200005

PATIENT
  Age: 10 Year
  Sex: Female

DRUGS (6)
  1. TRIPTORELIN PAMOATE [Suspect]
     Active Substance: TRIPTORELIN PAMOATE
     Indication: Gender dysphoria
     Dosage: DEPOT SUSPENSION
     Route: 065
     Dates: start: 20160407, end: 20200826
  2. TRIPTORELIN PAMOATE [Suspect]
     Active Substance: TRIPTORELIN PAMOATE
     Indication: Off label use
     Dosage: DEPOT SUSPENSION
     Route: 065
     Dates: start: 20160407, end: 20200826
  3. CONCERTA [Concomitant]
     Active Substance: METHYLPHENIDATE HYDROCHLORIDE
     Indication: Attention deficit hyperactivity disorder
     Route: 048
     Dates: start: 20191023, end: 20201208
  4. ZOLOFT [Concomitant]
     Active Substance: SERTRALINE HYDROCHLORIDE
     Indication: Depression
     Route: 048
     Dates: start: 20150727, end: 20210310
  5. RISPERDAL [Concomitant]
     Active Substance: RISPERIDONE
     Indication: Product used for unknown indication
     Dosage: AT NIGHT
     Route: 048
     Dates: start: 20151016, end: 20201215
  6. MELATONIN [Concomitant]
     Active Substance: MELATONIN
     Indication: Sleep disorder
     Dosage: ??2-6 MG
     Route: 048
     Dates: start: 20191023

REACTIONS (8)
  - Back pain [Recovering/Resolving]
  - Cognitive disorder [Unknown]
  - Emotional disorder [Unknown]
  - Growth retardation [Not Recovered/Not Resolved]
  - Osteopenia [Recovered/Resolved with Sequelae]
  - Off label use [Unknown]
  - Lumbar spinal stenosis [Unknown]
  - Spinal compression fracture [Recovered/Resolved with Sequelae]

NARRATIVE: CASE EVENT DATE: 20160407
